FAERS Safety Report 20674693 (Version 1)
Quarter: 2022Q2

REPORT INFORMATION
  Report Type: Report from Study
  Country: JP (occurrence: JP)
  Receive Date: 20220405
  Receipt Date: 20220405
  Transmission Date: 20220720
  Serious: Yes (Hospitalization)
  Sender: FDA-Public Use
  Company Number: JP-JNJFOC-A-CH2020-200577

PATIENT
  Age: 34 Year
  Sex: Female

DRUGS (10)
  1. OPSUMIT [Suspect]
     Active Substance: MACITENTAN
     Indication: Pulmonary arterial hypertension
     Dosage: 10 MG, QD
     Route: 048
     Dates: start: 20170110
  2. OPSUMIT [Suspect]
     Active Substance: MACITENTAN
     Dosage: 5 MG, QD
     Route: 048
     Dates: start: 20161108, end: 20170109
  3. WARFARIN [Suspect]
     Active Substance: WARFARIN
     Indication: Cerebral infarction
     Dosage: 6 MG, QD
     Route: 048
     Dates: start: 20150119, end: 20170901
  4. WARFARIN [Suspect]
     Active Substance: WARFARIN
     Dosage: 0.5 MG, QD
     Route: 048
     Dates: start: 20150119, end: 20170901
  5. LANSOPRAZOLE [Concomitant]
     Active Substance: LANSOPRAZOLE
     Indication: Gastrooesophageal reflux disease
     Route: 048
     Dates: start: 20150119, end: 20170901
  6. BUFFERIN [Concomitant]
     Active Substance: ASPIRIN
     Indication: Embolism
     Route: 048
     Dates: start: 20051206, end: 20170901
  7. BUFFERIN [Concomitant]
     Active Substance: ASPIRIN
     Route: 048
     Dates: start: 20170913, end: 20171113
  8. BUFFERIN [Concomitant]
     Active Substance: ASPIRIN
     Route: 048
     Dates: start: 20171116
  9. LANSOPRAZOLE [Concomitant]
     Active Substance: LANSOPRAZOLE
     Indication: Gastrooesophageal reflux disease
     Route: 048
     Dates: start: 20170913
  10. SODIUM FERROUS CITRATE [Concomitant]
     Active Substance: SODIUM FERROUS CITRATE
     Indication: Anaemia prophylaxis
     Route: 048
     Dates: start: 20170711, end: 20170809

REACTIONS (5)
  - Ovarian haemorrhage [Recovered/Resolved]
  - Transfusion [Unknown]
  - Ileus [Recovered/Resolved]
  - Nasopharyngitis [Recovered/Resolved]
  - Prothrombin time ratio increased [Recovered/Resolved]

NARRATIVE: CASE EVENT DATE: 20170711
